FAERS Safety Report 9082610 (Version 1)
Quarter: 2013Q1

REPORT INFORMATION
  Report Type: Report from Study
  Country: US (occurrence: US)
  Receive Date: 20130130
  Receipt Date: 20130130
  Transmission Date: 20140127
  Serious: No
  Sender: FDA-Public Use
  Company Number: US-ABBOTT-12P-163-0953100-00

PATIENT
  Age: 21 Year
  Sex: Male

DRUGS (6)
  1. HUMIRA 40 MG/0.8 ML PEN [Suspect]
     Indication: CROHN^S DISEASE
     Dosage: ON 29 JUN 2012
     Dates: start: 20120629
  2. FLUOXETINE [Concomitant]
     Indication: PRODUCT USED FOR UNKNOWN INDICATION
  3. SOLODYN [Concomitant]
     Indication: PRODUCT USED FOR UNKNOWN INDICATION
  4. CLARITIN-D [Concomitant]
     Indication: HYPERSENSITIVITY
  5. HYDROCODONE [Concomitant]
     Indication: CROHN^S DISEASE
  6. HYDROCODONE [Concomitant]
     Indication: PAIN

REACTIONS (1)
  - Injection site pain [Recovered/Resolved]
